FAERS Safety Report 9103637 (Version 2)
Quarter: 2015Q1

REPORT INFORMATION
  Report Type: Report from Study
  Country: NO (occurrence: NO)
  Receive Date: 20130218
  Receipt Date: 20150127
  Transmission Date: 20150721
  Serious: Yes (Death, Other)
  Sender: FDA-Public Use
  Company Number: NO-ROCHE-1188507

PATIENT
  Age: 67 Year
  Sex: Female

DRUGS (2)
  1. HEPARIN [Suspect]
     Active Substance: HEPARIN SODIUM
     Indication: CEREBRAL ARTERY OCCLUSION
     Dosage: DOSE: 5000 U, BEFORE THE INTERVENTION.
     Route: 013
  2. ALTEPLASE [Suspect]
     Active Substance: ALTEPLASE
     Indication: CEREBRAL ARTERY OCCLUSION
     Route: 042

REACTIONS (2)
  - Cerebral haemorrhage [Unknown]
  - Death [Fatal]
